FAERS Safety Report 8936289 (Version 1)
Quarter: 2012Q4

REPORT INFORMATION
  Report Type: 
  Country: US (occurrence: US)
  Receive Date: 20121130
  Receipt Date: 20121130
  Transmission Date: 20130627
  Serious: No
  Sender: FDA-Public Use
  Company Number: US-ABBOTT-12P-163-0973819-00

PATIENT
  Sex: Male
  Weight: 63.56 kg

DRUGS (2)
  1. ANDROGEL 1.62% [Suspect]
     Indication: BLOOD TESTOSTERONE DECREASED
     Dosage: 1 pump
     Dates: start: 201207
  2. ANDROGEL 1.62% [Suspect]
     Dosage: 2 Pumps

REACTIONS (5)
  - Muscle twitching [Unknown]
  - Blood testosterone decreased [Recovered/Resolved]
  - Aggression [Not Recovered/Not Resolved]
  - Fatigue [Unknown]
  - Medication error [Recovered/Resolved]
